FAERS Safety Report 7102222-8 (Version None)
Quarter: 2010Q4

REPORT INFORMATION
  Report Type: 
  Country: None (occurrence: None)
  Receive Date: 20101115
  Receipt Date: 20101105
  Transmission Date: 20110411
  Serious: No
  Sender: FDA-Public Use
  Company Number: US-BIOGENIDEC-2010BI033387

PATIENT
  Age: 38 Year
  Sex: Female

DRUGS (2)
  1. TYSABRI [Suspect]
     Indication: MULTIPLE SCLEROSIS
     Route: 042
     Dates: start: 20070920, end: 20100420
  2. TYSABRI [Suspect]
     Route: 042
     Dates: start: 20100823

REACTIONS (9)
  - ASTHENIA [None]
  - DEPRESSION [None]
  - DIPLOPIA [None]
  - FALL [None]
  - FATIGUE [None]
  - MIDDLE INSOMNIA [None]
  - PAIN [None]
  - TREMOR [None]
  - VISION BLURRED [None]
